FAERS Safety Report 19782521 (Version 1)
Quarter: 2021Q3

REPORT INFORMATION
  Report Type: Spontaneous
  Country: US (occurrence: US)
  Receive Date: 20210902
  Receipt Date: 20210902
  Transmission Date: 20211014
  Serious: No
  Sender: FDA-Public Use
  Company Number: US-ENDO PHARMACEUTICALS INC-2021-001660

PATIENT

DRUGS (4)
  1. PREDNISONE. [Suspect]
     Active Substance: PREDNISONE
     Indication: RASH
     Dosage: UNK (5 DAY COURSE), UNKNOWN
     Route: 065
  2. HYDROXYZINE [Suspect]
     Active Substance: HYDROXYZINE HYDROCHLORIDE
     Indication: RASH
     Dosage: UNK UNKNOWN, UNKNOWN
     Route: 048
  3. HYDROXYZINE [Suspect]
     Active Substance: HYDROXYZINE HYDROCHLORIDE
     Indication: URTICARIA
  4. PREDNISONE. [Suspect]
     Active Substance: PREDNISONE
     Indication: URTICARIA

REACTIONS (1)
  - Drug ineffective [Not Recovered/Not Resolved]
